FAERS Safety Report 10111102 (Version 1)
Quarter: 2014Q2

REPORT INFORMATION
  Report Type: Spontaneous
  Country: US (occurrence: None)
  Receive Date: 20140424
  Receipt Date: 20140424
  Transmission Date: 20141212
  Serious: Yes (Death)
  Sender: FDA-Public Use
  Company Number: None

PATIENT
  Age: 52 Year
  Sex: Male

DRUGS (2)
  1. GENGRAF [Suspect]
     Route: 048
     Dates: start: 20070926, end: 20140408
  2. MYCOPHENOLATE [Suspect]
     Indication: TRANSPLANT
     Route: 048
     Dates: start: 20070926, end: 20140408

REACTIONS (1)
  - Sudden death [None]
